FAERS Safety Report 12471615 (Version 5)
Quarter: 2016Q3

REPORT INFORMATION
  Report Type: Spontaneous
  Country: JP (occurrence: JP)
  Receive Date: 20160616
  Receipt Date: 20160802
  Transmission Date: 20161109
  Serious: Yes (Hospitalization, Disabling, Other)
  Sender: FDA-Public Use
  Company Number: JP-GLAXOSMITHKLINE-JP2016JPN083098

PATIENT
  Age: 67 Year
  Sex: Male
  Weight: 48 kg

DRUGS (2)
  1. AVOLVE [Suspect]
     Active Substance: DUTASTERIDE
     Indication: BENIGN PROSTATIC HYPERPLASIA
     Dosage: 0.5 MG, QD
     Route: 048
     Dates: start: 20160325, end: 20160615
  2. FLUTIDE [Concomitant]
     Active Substance: FLUTICASONE PROPIONATE
     Indication: ASTHMA
     Dosage: UNK

REACTIONS (23)
  - Asthma [Not Recovered/Not Resolved]
  - Henoch-Schonlein purpura [Not Recovered/Not Resolved]
  - Abdominal pain [Unknown]
  - Eosinophilic granulomatosis with polyangiitis [Not Recovered/Not Resolved]
  - Muscular weakness [Not Recovered/Not Resolved]
  - Gait disturbance [Not Recovered/Not Resolved]
  - Rectal ulcer [Recovering/Resolving]
  - Polyneuropathy [Not Recovered/Not Resolved]
  - Melaena [Recovered/Resolved]
  - Malaise [Unknown]
  - Musculoskeletal stiffness [Unknown]
  - Purpura [Recovered/Resolved]
  - Feeding disorder [Unknown]
  - Asthenia [Unknown]
  - Myalgia [Recovering/Resolving]
  - Eosinophil count increased [Recovered/Resolved]
  - Weight decreased [Not Recovered/Not Resolved]
  - Large intestine erosion [Unknown]
  - Skin discolouration [Unknown]
  - Feeling abnormal [Unknown]
  - Pyrexia [Recovering/Resolving]
  - Abdominal discomfort [Unknown]
  - Hypoaesthesia [Unknown]

NARRATIVE: CASE EVENT DATE: 201606
